FAERS Safety Report 7079627-7 (Version None)
Quarter: 2010Q4

REPORT INFORMATION
  Report Type: 
  Country: None (occurrence: None)
  Receive Date: 20101102
  Receipt Date: 20101020
  Transmission Date: 20110411
  Serious: Yes (Other)
  Sender: FDA-Public Use
  Company Number: PHHY2010NL52165

PATIENT
  Sex: Female

DRUGS (5)
  1. LEPONEX [Suspect]
     Dosage: 25 MG, UNK
     Dates: start: 20100601
  2. LEPONEX [Suspect]
     Dosage: 50 MG, UNK
  3. LEPONEX [Suspect]
     Dosage: 75 MG, UNK
  4. EFFEXOR XR [Concomitant]
     Dosage: 37.5 MG, BID
  5. BLLOD THINNERS [Concomitant]
     Dosage: UNK

REACTIONS (7)
  - GAIT DISTURBANCE [None]
  - MONOPLEGIA [None]
  - MYALGIA [None]
  - OEDEMA PERIPHERAL [None]
  - PAIN IN EXTREMITY [None]
  - PYREXIA [None]
  - TRANSIENT ISCHAEMIC ATTACK [None]
